APPROVED DRUG PRODUCT: HYDROCORTISONE
Active Ingredient: HYDROCORTISONE
Strength: 2.5%
Dosage Form/Route: LOTION;TOPICAL
Application: A040247 | Product #001
Applicant: SUN PHARMA CANADA INC
Approved: Jul 23, 1999 | RLD: No | RS: No | Type: DISCN